FAERS Safety Report 7411395-9 (Version None)
Quarter: 2011Q2

REPORT INFORMATION
  Report Type: 
  Country: None (occurrence: None)
  Receive Date: 20110413
  Receipt Date: 20100726
  Transmission Date: 20111010
  Serious: Yes (Other)
  Sender: FDA-Public Use
  Company Number: US-BRISTOL-MYERS SQUIBB COMPANY-15194574

PATIENT
  Age: 60 Year
  Sex: Male

DRUGS (1)
  1. ERBITUX [Suspect]
     Indication: HEAD AND NECK CANCER
     Dosage: LOADING DOSE
     Route: 042
     Dates: start: 20100520, end: 20100101

REACTIONS (7)
  - MALAISE [None]
  - VOMITING [None]
  - NAUSEA [None]
  - SWOLLEN TONGUE [None]
  - DYSPNOEA [None]
  - ERYTHEMA [None]
  - OXYGEN SATURATION DECREASED [None]
